FAERS Safety Report 5408924-3 (Version None)
Quarter: 2007Q3

REPORT INFORMATION
  Report Type: 
  Country: None (occurrence: None)
  Receive Date: 20070713
  Receipt Date: 20070426
  Transmission Date: 20080115
  Serious: Yes (Hospitalization, Other)
  Sender: FDA-Public Use
  Company Number: US-JNJFOC-20060704459

PATIENT
  Age: 36 Year
  Sex: Female
  Weight: 72.5755 kg

DRUGS (1)
  1. ORTHO EVRA [Suspect]
     Indication: DRUG USE FOR UNKNOWN INDICATION
     Dosage: TRANSDERMAL
     Route: 062
     Dates: start: 20030901, end: 20031201

REACTIONS (2)
  - BREAST CANCER [None]
  - DEEP VEIN THROMBOSIS [None]
